FAERS Safety Report 24857527 (Version 1)
Quarter: 2025Q1

REPORT INFORMATION
  Report Type: Spontaneous
  Country: US (occurrence: US)
  Receive Date: 20250117
  Receipt Date: 20250117
  Transmission Date: 20250409
  Serious: No
  Sender: PFIZER
  Company Number: US-PFIZER INC-202500009701

PATIENT
  Sex: Male

DRUGS (2)
  1. BRAFTOVI [Suspect]
     Active Substance: ENCORAFENIB
     Dates: start: 202407
  2. MEKTOVI [Suspect]
     Active Substance: BINIMETINIB
     Dates: start: 202407

REACTIONS (1)
  - Hepatomegaly [Not Recovered/Not Resolved]
